FAERS Safety Report 12414404 (Version 4)
Quarter: 2018Q1

REPORT INFORMATION
  Report Type: Spontaneous
  Country: US (occurrence: US)
  Receive Date: 20160528
  Receipt Date: 20180118
  Transmission Date: 20180508
  Serious: No
  Sender: FDA-Public Use
  Company Number: US-JNJFOC-20160411857

PATIENT
  Age: 10 Year
  Sex: Male

DRUGS (7)
  1. RISPERDAL [Suspect]
     Active Substance: RISPERIDONE
     Indication: BIPOLAR DISORDER
     Dosage: 1MG AND 2 MG
     Route: 048
     Dates: end: 20070618
  2. RISPERDAL [Suspect]
     Active Substance: RISPERIDONE
     Indication: ATTENTION DEFICIT/HYPERACTIVITY DISORDER
     Dosage: 1MG AND 2 MG
     Route: 048
     Dates: start: 20060628, end: 20070227
  3. ZYPREXA [Suspect]
     Active Substance: OLANZAPINE
     Indication: PRODUCT USED FOR UNKNOWN INDICATION
     Route: 048
  4. RISPERDAL [Suspect]
     Active Substance: RISPERIDONE
     Indication: ATTENTION DEFICIT/HYPERACTIVITY DISORDER
     Dosage: 1MG AND 2 MG
     Route: 048
     Dates: end: 20070618
  5. RISPERIDONE. [Suspect]
     Active Substance: RISPERIDONE
     Indication: PRODUCT USED FOR UNKNOWN INDICATION
     Route: 048
  6. RISPERDAL [Suspect]
     Active Substance: RISPERIDONE
     Indication: BIPOLAR DISORDER
     Dosage: 1MG AND 2 MG
     Route: 048
     Dates: start: 20060628, end: 20070227
  7. HALDOL [Suspect]
     Active Substance: HALOPERIDOL
     Indication: PRODUCT USED FOR UNKNOWN INDICATION
     Route: 030

REACTIONS (6)
  - Breast enlargement [Unknown]
  - Increased appetite [Unknown]
  - Emotional disorder [Unknown]
  - Drug ineffective [Unknown]
  - Weight increased [Unknown]
  - Sedation [Unknown]

NARRATIVE: CASE EVENT DATE: 200607
